FAERS Safety Report 5374910-5 (Version None)
Quarter: 2007Q2

REPORT INFORMATION
  Report Type: 
  Country: None (occurrence: None)
  Receive Date: 20070627
  Receipt Date: 20070627
  Transmission Date: 20071010
  Serious: Yes (Hospitalization, Disabling, Other)
  Sender: FDA-Public Use
  Company Number: None

PATIENT
  Age: 89 Year
  Sex: Female
  Weight: 55 kg

DRUGS (1)
  1. NOVOLIN R [Suspect]
     Indication: HYPERGLYCAEMIA
     Dosage: TITRATED INFUSION WHILE IN ICU ONLY
     Dates: start: 20070429, end: 20070504

REACTIONS (1)
  - HYPOGLYCAEMIA [None]
